FAERS Safety Report 6045123-9 (Version None)
Quarter: 2009Q1

REPORT INFORMATION
  Report Type: 
  Country: None (occurrence: None)
  Receive Date: 20090121
  Receipt Date: 20090112
  Transmission Date: 20090719
  Serious: Yes (Hospitalization)
  Sender: FDA-Public Use
  Company Number: US-BIOGENIDEC-2008BI030542

PATIENT
  Age: 56 Year
  Sex: Female
  Weight: 98 kg

DRUGS (10)
  1. AVONEX [Suspect]
     Indication: MULTIPLE SCLEROSIS
     Route: 030
     Dates: start: 20031001
  2. AVONEX [Suspect]
     Route: 030
  3. METFORMIN [Concomitant]
     Indication: DIABETES MELLITUS
     Dates: start: 20040101
  4. JANUVIA [Concomitant]
     Indication: DIABETES MELLITUS
     Dates: start: 20040101
  5. GLYBURIDE [Concomitant]
     Indication: DIABETES MELLITUS
     Dates: start: 20080101
  6. DIOVAN [Concomitant]
     Indication: DRUG USE FOR UNKNOWN INDICATION
  7. LIPITOR [Concomitant]
     Indication: DRUG USE FOR UNKNOWN INDICATION
  8. PROVIGIL [Concomitant]
     Indication: DRUG USE FOR UNKNOWN INDICATION
  9. PROZAC [Concomitant]
     Indication: DRUG USE FOR UNKNOWN INDICATION
  10. TENORMIN [Concomitant]
     Indication: DRUG USE FOR UNKNOWN INDICATION

REACTIONS (1)
  - ENDOMETRIAL CANCER STAGE I [None]
